FAERS Safety Report 17673219 (Version 2)
Quarter: 2020Q2

REPORT INFORMATION
  Report Type: Report from Study
  Country: None (occurrence: US)
  Receive Date: 20200416
  Receipt Date: 20200520
  Transmission Date: 20200713
  Serious: Yes (Hospitalization)
  Sender: FDA-Public Use
  Company Number: US-ABBVIE-20K-163-3362387-00

PATIENT
  Age: 65 Year
  Sex: Female

DRUGS (1)
  1. HUMIRA [Suspect]
     Active Substance: ADALIMUMAB
     Indication: CROHN^S DISEASE
     Route: 058

REACTIONS (9)
  - Red blood cell count abnormal [Unknown]
  - Dehydration [Unknown]
  - Fatigue [Unknown]
  - Weight increased [Unknown]
  - Malaise [Not Recovered/Not Resolved]
  - Hypotension [Unknown]
  - Feeling abnormal [Unknown]
  - Pain [Not Recovered/Not Resolved]
  - Decreased appetite [Unknown]

NARRATIVE: CASE EVENT DATE: 202001
